FAERS Safety Report 20528274 (Version 4)
Quarter: 2022Q1

REPORT INFORMATION
  Report Type: Report from Study
  Country: TR (occurrence: TR)
  Receive Date: 20220228
  Receipt Date: 20220314
  Transmission Date: 20220423
  Serious: Yes (Hospitalization)
  Sender: FDA-Public Use
  Company Number: TR-CELGENE-TUR-20220207049

PATIENT
  Age: 46 Year
  Sex: Male
  Weight: 76 kg

DRUGS (10)
  1. AZACITIDINE [Suspect]
     Active Substance: AZACITIDINE
     Indication: Acute myeloid leukaemia
     Dosage: 200 MILLIGRAM
     Route: 048
     Dates: start: 20211216, end: 20220213
  2. VENETOCLAX [Suspect]
     Active Substance: VENETOCLAX
     Indication: Acute myeloid leukaemia
     Dosage: 400 MILLIGRAM
     Route: 048
     Dates: start: 20211216, end: 20220216
  3. LEVOTHYROXINE SODIUM [Concomitant]
     Active Substance: LEVOTHYROXINE SODIUM
     Indication: Hypothyroidism
     Route: 048
     Dates: start: 20210507
  4. PANTO [Concomitant]
     Indication: Gastrooesophageal reflux disease
     Dosage: 40 MILLIGRAM
     Route: 048
     Dates: start: 2015
  5. KYTRIL [Concomitant]
     Active Substance: GRANISETRON HYDROCHLORIDE
     Indication: Prophylaxis of nausea and vomiting
     Dosage: 1 MILLIGRAM
     Route: 048
     Dates: start: 20220131, end: 20220218
  6. FILGRASTIM [Concomitant]
     Active Substance: FILGRASTIM
     Indication: Febrile neutropenia
     Dosage: 30 MICROGRAM
     Route: 058
     Dates: start: 20220110, end: 20220118
  7. FILGRASTIM [Concomitant]
     Active Substance: FILGRASTIM
     Indication: Neutrophil count decreased
     Dosage: 48 MICROGRAM
     Route: 058
     Dates: start: 20220217, end: 20220224
  8. FILGRASTIM [Concomitant]
     Active Substance: FILGRASTIM
     Dosage: 48 MICROGRAM
     Route: 058
     Dates: start: 20220224, end: 20220224
  9. FILGRASTIM [Concomitant]
     Active Substance: FILGRASTIM
     Dosage: 30 MICROGRAM
     Route: 058
     Dates: start: 20220228, end: 20220228
  10. TANTUM VERDE SPRAY [Concomitant]
     Indication: Aphthous ulcer
     Route: 048
     Dates: start: 20220112, end: 20220118

REACTIONS (1)
  - Colitis [Recovered/Resolved]

NARRATIVE: CASE EVENT DATE: 20220218
